FAERS Safety Report 5696558-5 (Version None)
Quarter: 2008Q2

REPORT INFORMATION
  Report Type: 
  Country: None (occurrence: None)
  Receive Date: 20080404
  Receipt Date: 20080404
  Transmission Date: 20081010
  Serious: Yes (Other)
  Sender: FDA-Public Use
  Company Number: None

PATIENT
  Age: 55 Year
  Sex: Female
  Weight: 73.4827 kg

DRUGS (4)
  1. SINGULAIR [Suspect]
     Indication: ASTHMA
     Dosage: 10 MGS ONCE AT NIGHT PO
     Route: 048
     Dates: start: 20050310, end: 20060310
  2. SINGULAIR [Suspect]
     Indication: MULTIPLE ALLERGIES
     Dosage: 10 MGS ONCE AT NIGHT PO
     Route: 048
     Dates: start: 20050310, end: 20060310
  3. SINGULAIR [Suspect]
     Indication: ASTHMA
     Dosage: 5 MGS ONCE AT NIGHT PO
     Route: 048
     Dates: start: 20060311, end: 20080318
  4. SINGULAIR [Suspect]
     Indication: MULTIPLE ALLERGIES
     Dosage: 5 MGS ONCE AT NIGHT PO
     Route: 048
     Dates: start: 20060311, end: 20080318

REACTIONS (7)
  - ANXIETY [None]
  - DEPRESSION [None]
  - EMOTIONAL DISORDER [None]
  - MENOPAUSAL SYMPTOMS [None]
  - MUSCULOSKELETAL STIFFNESS [None]
  - PAIN IN EXTREMITY [None]
  - WEIGHT INCREASED [None]
